FAERS Safety Report 5245395-4 (Version None)
Quarter: 2007Q1

REPORT INFORMATION
  Report Type: 
  Country: None (occurrence: None)
  Receive Date: 20070223
  Receipt Date: 20070214
  Transmission Date: 20070707
  Serious: Yes (Other)
  Sender: FDA-Public Use
  Company Number: PHNR2006AU01721

PATIENT
  Age: 64 Year
  Sex: Male

DRUGS (4)
  1. ZOMETA [Suspect]
     Indication: MULTIPLE MYELOMA
     Dosage: 4MG
     Dates: start: 20031223, end: 20061101
  2. THALIDOMIDE [Concomitant]
  3. CYCLOPHOSPHAMIDE [Concomitant]
     Indication: MULTIPLE MYELOMA
  4. METHYLPREDNISOLONE 16MG TAB [Concomitant]
     Indication: MULTIPLE MYELOMA

REACTIONS (3)
  - MAXILLOFACIAL OPERATION [None]
  - OSTEONECROSIS [None]
  - PAIN IN JAW [None]
